FAERS Safety Report 7423834-8 (Version None)
Quarter: 2011Q2

REPORT INFORMATION
  Report Type: 
  Country: None (occurrence: None)
  Receive Date: 20110419
  Receipt Date: 20110408
  Transmission Date: 20111010
  Serious: Yes (Other)
  Sender: FDA-Public Use
  Company Number: PHHY2010US89456

PATIENT
  Age: 45 Year
  Sex: Female

DRUGS (5)
  1. ZANAFLEX [Concomitant]
     Dosage: 4 MG, BID
  2. METFORMIN HCL [Concomitant]
     Indication: DIABETES MELLITUS
     Dosage: 500 MG, BID
  3. GILENYA [Suspect]
     Dosage: 0.5 MG, QD
     Route: 048
     Dates: start: 20101228
  4. ZOLOFT [Concomitant]
     Dosage: 100 MG, DAILY
  5. IMITREX [Concomitant]
     Indication: MIGRAINE
     Dosage: 100 MG, PRN

REACTIONS (1)
  - HEART RATE DECREASED [None]
